FAERS Safety Report 9239660 (Version 1)
Quarter: 2013Q2

REPORT INFORMATION
  Report Type: Spontaneous
  Country: IT (occurrence: IT)
  Receive Date: 20130418
  Receipt Date: 20130418
  Transmission Date: 20140414
  Serious: Yes (Other)
  Sender: FDA-Public Use
  Company Number: PHHY2013IT035271

PATIENT
  Sex: Male

DRUGS (2)
  1. EXJADE [Suspect]
     Indication: HAEMOCHROMATOSIS
     Dosage: 750 MG, DAILY
     Route: 048
     Dates: start: 20121024, end: 20121115
  2. KCL-RETARD [Concomitant]
     Dosage: 1 DF, UNK
     Route: 048

REACTIONS (2)
  - Cholestasis [Recovered/Resolved]
  - Transaminases increased [Recovered/Resolved]
